FAERS Safety Report 5752756-3 (Version None)
Quarter: 2008Q2

REPORT INFORMATION
  Report Type: 
  Country: None (occurrence: None)
  Receive Date: 20080527
  Receipt Date: 20080527
  Transmission Date: 20081010
  Serious: Yes (Death)
  Sender: FDA-Public Use
  Company Number: None

PATIENT
  Sex: Female
  Weight: 95.2554 kg

DRUGS (8)
  1. REVATIO [Suspect]
     Indication: PULMONARY HYPERTENSION
     Dosage: 20 MG T.I.D. P.O.
     Route: 048
  2. SERTRALINE [Concomitant]
  3. ATORVASTATIN [Concomitant]
  4. METOPROLOL TARTRATE [Concomitant]
  5. METFORMIN HCL [Concomitant]
  6. LOSARTAN POTASSIUM [Concomitant]
  7. LASIX [Concomitant]
  8. POSTASSIUM [Concomitant]

REACTIONS (2)
  - CARDIAC ARREST [None]
  - SUDDEN DEATH [None]
